FAERS Safety Report 6116129-6 (Version None)
Quarter: 2009Q1

REPORT INFORMATION
  Report Type: 
  Country: None (occurrence: None)
  Receive Date: 20090314
  Receipt Date: 20081201
  Transmission Date: 20090719
  Serious: No
  Sender: FDA-Public Use
  Company Number: US-ABBOTT-08P-163-0490407-00

PATIENT
  Sex: Female
  Weight: 59.02 kg

DRUGS (4)
  1. HUMIRA [Suspect]
     Indication: RHEUMATOID ARTHRITIS
     Route: 058
     Dates: start: 20020101
  2. LEVOTHYROXINE SODIUM [Concomitant]
     Indication: HYPOTHYROIDISM
  3. CLENDIL [Concomitant]
     Indication: BLOOD PRESSURE
  4. ATENOLOL [Concomitant]
     Indication: BLOOD PRESSURE

REACTIONS (2)
  - ARTHRITIS INFECTIVE [None]
  - JOINT SWELLING [None]
